FAERS Safety Report 9881060 (Version 1)
Quarter: 2014Q1

REPORT INFORMATION
  Report Type: Report from Study
  Country: CA (occurrence: CA)
  Receive Date: 20140207
  Receipt Date: 20140207
  Transmission Date: 20141002
  Serious: Yes (Other)
  Sender: FDA-Public Use
  Company Number: CA-ASTELLAS-2014US001171

PATIENT
  Age: 58 Year
  Sex: Female

DRUGS (2)
  1. ERLOTINIB TABLET [Suspect]
     Indication: NON-SMALL CELL LUNG CANCER
     Dosage: UNK
     Route: 048
     Dates: start: 20131209
  2. LORAZEPAM [Concomitant]
     Indication: PRODUCT USED FOR UNKNOWN INDICATION
     Dosage: UNK
     Route: 065

REACTIONS (8)
  - Pancreatic enzyme abnormality [Unknown]
  - Hepatic function abnormal [Unknown]
  - Ocular hyperaemia [Unknown]
  - Inflammation [Unknown]
  - Fatigue [Unknown]
  - Respiratory rate decreased [Unknown]
  - Cough [Unknown]
  - Pruritus generalised [Unknown]
